FAERS Safety Report 13098453 (Version 1)
Quarter: 2017Q1

REPORT INFORMATION
  Report Type: Spontaneous
  Country: SE (occurrence: SE)
  Receive Date: 20170109
  Receipt Date: 20170109
  Transmission Date: 20170428
  Serious: Yes (Hospitalization)
  Sender: FDA-Public Use
  Company Number: SE-MEDA-2017010031

PATIENT
  Age: 78 Year
  Sex: Female

DRUGS (3)
  1. ZOLPIDEM [Suspect]
     Active Substance: ZOLPIDEM\ZOLPIDEM TARTRATE
  2. OXASCAND [Suspect]
     Active Substance: OXAZEPAM
  3. PARACETAMOL [Suspect]
     Active Substance: ACETAMINOPHEN

REACTIONS (2)
  - Suicide attempt [Recovered/Resolved]
  - Toxicity to various agents [Recovered/Resolved]
